FAERS Safety Report 16014941 (Version 2)
Quarter: 2019Q1

REPORT INFORMATION
  Report Type: Spontaneous
  Country: US (occurrence: US)
  Receive Date: 20190227
  Receipt Date: 20190327
  Transmission Date: 20190418
  Serious: No
  Sender: FDA-Public Use
  Company Number: US-ASTRAZENECA-2019SE21467

PATIENT
  Age: 1010 Month
  Sex: Female
  Weight: 71.2 kg

DRUGS (7)
  1. GAVISCON [Concomitant]
     Active Substance: ALUMINUM HYDROXIDE\MAGNESIUM CARBONATE
     Indication: GASTROOESOPHAGEAL REFLUX DISEASE
     Dosage: AS REQUIRED
     Route: 048
  2. TESSELON PERLES [Concomitant]
     Indication: COUGH
     Route: 048
  3. DEXILANT [Concomitant]
     Active Substance: DEXLANSOPRAZOLE
     Indication: GASTROOESOPHAGEAL REFLUX DISEASE
     Dosage: DAILY
     Route: 048
  4. PROAIR HFA [Concomitant]
     Active Substance: ALBUTEROL SULFATE
     Dosage: AS REQUIRED
     Route: 055
  5. PULMICORT FLEXHALER [Suspect]
     Active Substance: BUDESONIDE
     Indication: COUGH
     Dosage: 180 UG, ONE RESPIRATORY INHALATION, TWICE A DAY FOR ONE MONTH AND THEN AFTER ONE INHALATION FOR T...
     Route: 055
     Dates: start: 20190118
  6. PULMICORT FLEXHALER [Suspect]
     Active Substance: BUDESONIDE
     Indication: WHEEZING
     Dosage: 180 UG, ONE RESPIRATORY INHALATION, TWICE A DAY FOR ONE MONTH AND THEN AFTER ONE INHALATION FOR T...
     Route: 055
     Dates: start: 20190118
  7. PREDNISONE. [Concomitant]
     Active Substance: PREDNISONE
     Indication: COUGH

REACTIONS (9)
  - Circumstance or information capable of leading to medication error [Not Recovered/Not Resolved]
  - Intentional device misuse [Not Recovered/Not Resolved]
  - Device failure [Unknown]
  - Hallucination [Unknown]
  - Product use in unapproved indication [Unknown]
  - Productive cough [Recovered/Resolved with Sequelae]
  - Gastrooesophageal reflux disease [Unknown]
  - Off label use [Not Recovered/Not Resolved]
  - Device issue [Unknown]

NARRATIVE: CASE EVENT DATE: 201901
